FAERS Safety Report 8571633-6 (Version None)
Quarter: 2012Q3

REPORT INFORMATION
  Report Type: 
  Country: None (occurrence: None)
  Receive Date: 20120806
  Receipt Date: 20120725
  Transmission Date: 20120928
  Serious: Yes (Hospitalization)
  Sender: FDA-Public Use
  Company Number: US-BAYER-201028830NA

PATIENT
  Age: 47 Year
  Sex: Female
  Weight: 90.703 kg

DRUGS (11)
  1. LITHIUM CARBONATE [Concomitant]
     Dosage: 600 MG, UNK
     Route: 048
  2. YASMIN [Suspect]
     Indication: ORAL CONTRACEPTION
     Dosage: UNK
     Route: 048
     Dates: start: 20080601, end: 20080701
  3. BUPROPION HYDROCHLORIDE [Concomitant]
     Dosage: 150 MG, UNK
     Dates: start: 20080506
  4. FLUCONAZOLE [Concomitant]
     Dosage: 150 MG, UNK
     Dates: start: 20080603
  5. AMOXICILLIN [Concomitant]
     Dosage: 875 MG, UNK
     Dates: start: 20080603
  6. YAZ [Suspect]
     Dosage: UNK
     Dates: start: 20080609, end: 20080707
  7. IBUPROFEN (ADVIL) [Concomitant]
     Indication: HEADACHE
     Dosage: 600 MG, UNK
  8. KEPPRA [Concomitant]
     Indication: CONVULSION
  9. CIPROFLOXACIN [Concomitant]
     Dosage: 500 MG, UNK
     Dates: start: 20080603
  10. NEXIUM [Concomitant]
     Route: 048
  11. CLARITIN [Concomitant]
     Indication: MULTIPLE ALLERGIES
     Dosage: 10 MG, UNK
     Route: 048

REACTIONS (8)
  - CEREBROVASCULAR ACCIDENT [None]
  - SIMPLE PARTIAL SEIZURES [None]
  - INTRACRANIAL VENOUS SINUS THROMBOSIS [None]
  - SPEECH DISORDER [None]
  - VIITH NERVE PARALYSIS [None]
  - HEADACHE [None]
  - PARAESTHESIA [None]
  - HYPOAESTHESIA [None]
